FAERS Safety Report 6567872-6 (Version None)
Quarter: 2010Q1

REPORT INFORMATION
  Report Type: 
  Country: None (occurrence: None)
  Receive Date: 20100203
  Receipt Date: 20100121
  Transmission Date: 20100710
  Serious: Yes (Other)
  Sender: FDA-Public Use
  Company Number: PHHY2010PT04305

PATIENT
  Age: 61 Year
  Sex: Female

DRUGS (13)
  1. ACLASTA [Suspect]
     Indication: OSTEOPOROSIS PROPHYLAXIS
     Dosage: UNK
     Route: 042
  2. TIMOPTOL [Concomitant]
  3. COVERSYL [Concomitant]
  4. PLAVIX [Concomitant]
  5. SOMAZINA [Concomitant]
  6. VASTAREL [Concomitant]
  7. TRAZONE [Concomitant]
  8. OMEPRAZOLE [Concomitant]
  9. CARVEDILOL [Concomitant]
  10. VISACOR [Concomitant]
  11. BILOBAN [Concomitant]
  12. INDAPAMIDE [Concomitant]
  13. AIRTAL [Concomitant]

REACTIONS (6)
  - BONE PAIN [None]
  - HYPOTENSION [None]
  - PRESYNCOPE [None]
  - SYNCOPE [None]
  - VISUAL ACUITY REDUCED [None]
  - VISUAL IMPAIRMENT [None]
